FAERS Safety Report 21959364 (Version 1)
Quarter: 2023Q1

REPORT INFORMATION
  Report Type: Spontaneous
  Country: GB (occurrence: GB)
  Receive Date: 20230206
  Receipt Date: 20230206
  Transmission Date: 20230418
  Serious: Yes (Other)
  Sender: FDA-Public Use
  Company Number: GB-MHRA-MED-202301311636358760-FMHQB

PATIENT
  Age: 66 Year
  Sex: Male
  Weight: 88 kg

DRUGS (3)
  1. HYDROCORTISONE [Suspect]
     Active Substance: HYDROCORTISONE
     Indication: Skin infection
     Dosage: UNK, LESS THAN 20MG
     Route: 065
     Dates: start: 20170115
  2. CLOTRIMAZOLE [Suspect]
     Active Substance: CLOTRIMAZOLE
     Indication: Skin infection
     Dosage: UNK, LESS THAN 20MG
     Route: 065
     Dates: start: 20170115
  3. WARFARIN [Concomitant]
     Active Substance: WARFARIN
     Indication: Factor V Leiden mutation
     Dosage: UNK
     Route: 065
     Dates: start: 20060701

REACTIONS (5)
  - Mental fatigue [Not Recovered/Not Resolved]
  - Lethargy [Unknown]
  - Fatigue [Unknown]
  - Cold sweat [Unknown]
  - Headache [Unknown]

NARRATIVE: CASE EVENT DATE: 20220802
